FAERS Safety Report 5199708-2 (Version None)
Quarter: 2007Q1

REPORT INFORMATION
  Report Type: 
  Country: None (occurrence: None)
  Receive Date: 20070102
  Receipt Date: 20070102
  Transmission Date: 20070707
  Serious: Yes (Other)
  Sender: FDA-Public Use
  Company Number: None

PATIENT
  Sex: Female
  Weight: 89.5 kg

DRUGS (2)
  1. REMICADE [Suspect]
     Indication: RHEUMATOID ARTHRITIS
     Dosage: 400MG EVERY 6 WEEKS IV
     Route: 042
     Dates: start: 20000101
  2. METHOTREXATE [Suspect]
     Indication: RHEUMATOID ARTHRITIS
     Dosage: 17.5 MG WEEKLY IM
     Route: 030
     Dates: start: 20010619

REACTIONS (3)
  - RASH PRURITIC [None]
  - SKIN LESION [None]
  - STOMATITIS [None]
